FAERS Safety Report 14436285 (Version 2)
Quarter: 2018Q1

REPORT INFORMATION
  Report Type: Report from Study
  Country: CA (occurrence: CA)
  Receive Date: 20180125
  Receipt Date: 20180304
  Transmission Date: 20180509
  Serious: Yes (Other)
  Sender: FDA-Public Use
  Company Number: CA-AMGEN-CANSL2018003147

PATIENT
  Age: 48 Year
  Sex: Female

DRUGS (5)
  1. LEFLUNOMIDE. [Concomitant]
     Active Substance: LEFLUNOMIDE
     Dosage: 10 MG, QD
     Dates: start: 201611, end: 20171227
  2. ENBREL [Suspect]
     Active Substance: ETANERCEPT
     Dosage: 40 MG, 2 TIMES/WK
     Route: 058
     Dates: start: 201712, end: 20171227
  3. METHOTREXATE. [Concomitant]
     Active Substance: METHOTREXATE
     Dosage: 10 MG, QWK
     Dates: start: 201511, end: 20171227
  4. PREDNISONE. [Suspect]
     Active Substance: PREDNISONE
     Indication: RENAL FAILURE
     Dosage: 60 MG, QD
     Route: 065
     Dates: start: 201712
  5. ENBREL [Suspect]
     Active Substance: ETANERCEPT
     Indication: RHEUMATOID ARTHRITIS
     Dosage: 50 MG, UNK
     Route: 065
     Dates: start: 20170331, end: 201712

REACTIONS (1)
  - Renal failure [Recovering/Resolving]

NARRATIVE: CASE EVENT DATE: 20171221
